FAERS Safety Report 8924103 (Version 3)
Quarter: 2012Q4

REPORT INFORMATION
  Report Type: 
  Country: JP (occurrence: JP)
  Receive Date: 20121126
  Receipt Date: 20121213
  Transmission Date: 20130627
  Serious: Yes (Other)
  Sender: FDA-Public Use
  Company Number: PHHY2012JP106598

PATIENT
  Age: 66 None
  Sex: Male

DRUGS (5)
  1. SYMMETREL [Suspect]
     Indication: PARKINSON^S DISEASE
     Dosage: UNK UKN, UNK
     Route: 048
     Dates: start: 200404, end: 200904
  2. BAYASPIRIN [Concomitant]
     Indication: CEREBRAL INFARCTION
     Dosage: UNK UKN, UNK
     Route: 048
  3. OMEPRAL [Concomitant]
     Indication: GASTRITIS
     Dosage: UNK UKN, UNK
  4. GASMOTIN [Concomitant]
     Indication: GASTRITIS
     Dosage: UNK UKN, UNK
  5. ZYLORIC [Concomitant]
     Indication: GOUT
     Dosage: UNK UKN, UNK

REACTIONS (4)
  - Corneal endothelial cell loss [Not Recovered/Not Resolved]
  - Corneal disorder [Recovered/Resolved]
  - Visual acuity reduced [Recovered/Resolved]
  - Corneal oedema [Recovering/Resolving]
